FAERS Safety Report 19869482 (Version 1)
Quarter: 2021Q3

REPORT INFORMATION
  Report Type: Spontaneous
  Country: SI (occurrence: SI)
  Receive Date: 20210923
  Receipt Date: 20210923
  Transmission Date: 20211014
  Serious: Yes (Other)
  Sender: FDA-Public Use
  Company Number: SI-ROCHE-2915741

PATIENT
  Age: 76 Year
  Sex: Male

DRUGS (5)
  1. RANIBIZUMAB. [Suspect]
     Active Substance: RANIBIZUMAB
     Indication: PRODUCT USED FOR UNKNOWN INDICATION
     Dosage: 1ST YEAR 7 TIMES
     Route: 065
  2. RANIBIZUMAB. [Suspect]
     Active Substance: RANIBIZUMAB
     Dosage: 4TH YEAR, 7 TIMES
     Route: 065
  3. RANIBIZUMAB. [Suspect]
     Active Substance: RANIBIZUMAB
     Dosage: 2ND  YEAR 3 TIMES
     Route: 065
  4. RANIBIZUMAB. [Suspect]
     Active Substance: RANIBIZUMAB
     Dosage: 3RD YEAR, 5 TIMES
     Route: 065
  5. RANIBIZUMAB. [Suspect]
     Active Substance: RANIBIZUMAB
     Dosage: 5TH YEAR, 2 TIMES
     Route: 065

REACTIONS (3)
  - Retinal haemorrhage [Unknown]
  - Retinal oedema [Unknown]
  - Retinal exudates [Unknown]
